FAERS Safety Report 20530895 (Version 3)
Quarter: 2024Q2

REPORT INFORMATION
  Report Type: Spontaneous
  Country: US (occurrence: US)
  Receive Date: 20220301
  Receipt Date: 20240405
  Transmission Date: 20240716
  Serious: Yes (Other)
  Sender: FDA-Public Use
  Company Number: US-IGSA-BIG0013419

PATIENT
  Sex: Female
  Weight: 71 kg

DRUGS (48)
  1. PROLASTIN-C LIQUID [Suspect]
     Active Substance: .ALPHA.1-PROTEINASE INHIBITOR HUMAN
     Indication: Alpha-1 antitrypsin deficiency
     Dosage: 4260 MILLIGRAM, Q.WK.
     Route: 042
     Dates: start: 20190516
  2. PROLASTIN-C LIQUID [Suspect]
     Active Substance: .ALPHA.1-PROTEINASE INHIBITOR HUMAN
     Dosage: 3780 MILLIGRAM, Q.WK.
     Route: 042
     Dates: start: 20190613
  3. FENOFIBRATE [Concomitant]
     Active Substance: FENOFIBRATE
  4. LORATADINE [Concomitant]
     Active Substance: LORATADINE
  5. PAXIL [Concomitant]
     Active Substance: PAROXETINE HYDROCHLORIDE
  6. SYNTHROID [Concomitant]
     Active Substance: LEVOTHYROXINE SODIUM
  7. LACTULOSE [Concomitant]
     Active Substance: LACTULOSE
  8. TRILEPTAL [Concomitant]
     Active Substance: OXCARBAZEPINE
  9. SYMBICORT [Concomitant]
     Active Substance: BUDESONIDE\FORMOTEROL FUMARATE DIHYDRATE
  10. MAXALT [Concomitant]
     Active Substance: RIZATRIPTAN BENZOATE
  11. PHENTERMINE [Concomitant]
     Active Substance: PHENTERMINE
  12. SOMA [Concomitant]
     Active Substance: CARISOPRODOL
  13. MIRTAZAPINE [Concomitant]
     Active Substance: MIRTAZAPINE
  14. RISPERDAL [Concomitant]
     Active Substance: RISPERIDONE
  15. VIVACTIL [Concomitant]
     Active Substance: PROTRIPTYLINE HYDROCHLORIDE
  16. CLONAZEPAM [Concomitant]
     Active Substance: CLONAZEPAM
  17. HALCION [Concomitant]
     Active Substance: TRIAZOLAM
  18. WELLBUTRIN [Concomitant]
     Active Substance: BUPROPION HYDROCHLORIDE
  19. NUCYNTA ER [Concomitant]
     Active Substance: TAPENTADOL HYDROCHLORIDE
  20. VALIUM [Concomitant]
     Active Substance: DIAZEPAM
  21. VITAMINS NOS [Concomitant]
     Active Substance: VITAMINS
  22. NARCAN [Concomitant]
     Active Substance: NALOXONE HYDROCHLORIDE
  23. VENTOLIN HFA [Concomitant]
     Active Substance: ALBUTEROL SULFATE
  24. TRIAZOLAM [Concomitant]
     Active Substance: TRIAZOLAM
  25. ABILIFY MYCITE [Concomitant]
     Active Substance: ARIPIPRAZOLE
  26. BOTOX [Concomitant]
     Active Substance: ONABOTULINUMTOXINA
  27. PRAVASTATIN SODIUM [Concomitant]
     Active Substance: PRAVASTATIN SODIUM
  28. OXYCODONE HYDROCHLORIDE [Concomitant]
     Active Substance: OXYCODONE HYDROCHLORIDE
  29. DICLOFENAC POTASSIUM [Concomitant]
     Active Substance: DICLOFENAC POTASSIUM
  30. MOTRIN IB [Concomitant]
     Active Substance: IBUPROFEN
  31. FAMOTIDINE [Concomitant]
     Active Substance: FAMOTIDINE
  32. ALBUTEROL SULFATE [Concomitant]
     Active Substance: ALBUTEROL SULFATE
  33. FLOVENT HFA [Concomitant]
     Active Substance: FLUTICASONE PROPIONATE
  34. PROMETHAZINE HYDROCHLORIDE [Concomitant]
     Active Substance: PROMETHAZINE HYDROCHLORIDE
  35. BUSPIRONE HCL [Concomitant]
     Active Substance: BUSPIRONE HYDROCHLORIDE
  36. GABAPENTIN;TRAMADOL HYDROCHLORIDE [Concomitant]
  37. LIDOCAINE VISCOUS [Concomitant]
     Active Substance: LIDOCAINE HYDROCHLORIDE
  38. MAXZIDE [Concomitant]
     Active Substance: HYDROCHLOROTHIAZIDE\TRIAMTERENE
  39. VITAMIN D3 [Concomitant]
     Active Substance: CHOLECALCIFEROL
  40. POTASSIUM GLUCONATE [Concomitant]
     Active Substance: POTASSIUM GLUCONATE
  41. VITAMIN B-COMPLEX [ASCORBIC ACID;CALCIUM PANTOTHENATE;CYANOCOBALAMIN;N [Concomitant]
  42. BIOTIN [Concomitant]
     Active Substance: BIOTIN
  43. LUTEIN COMPLEX [TAGETES ERECTA] [Concomitant]
  44. VITAMIN C [ASCORBIC ACID;BETACAROTENE;ROSA CANINA] [Concomitant]
  45. LISINOPRIL [Concomitant]
     Active Substance: LISINOPRIL
  46. IBUPROFEN [Concomitant]
     Active Substance: IBUPROFEN
  47. OXCARBAZEPINE [Concomitant]
     Active Substance: OXCARBAZEPINE
  48. ROSUVASTATIN [Concomitant]
     Active Substance: ROSUVASTATIN

REACTIONS (3)
  - Somnolence [Recovering/Resolving]
  - Road traffic accident [Not Recovered/Not Resolved]
  - Fatigue [Not Recovered/Not Resolved]
